FAERS Safety Report 15221936 (Version 1)
Quarter: 2018Q3

REPORT INFORMATION
  Report Type: Spontaneous
  Country: US (occurrence: US)
  Receive Date: 20180731
  Receipt Date: 20180731
  Transmission Date: 20181010
  Serious: Yes (Other)
  Sender: FDA-Public Use
  Company Number: US-PFIZER INC-2017526304

PATIENT
  Age: 51 Year
  Sex: Female
  Weight: 104.31 kg

DRUGS (3)
  1. HERCEPTIN [Concomitant]
     Active Substance: TRASTUZUMAB
     Indication: BREAST CANCER
     Dosage: 189 MG, UNK
     Dates: start: 20110420, end: 20110713
  2. DOCETAXEL. [Suspect]
     Active Substance: DOCETAXEL
     Indication: BREAST CANCER
     Dosage: 150 MG, EVERY 3 WEEKS
     Dates: start: 20110330, end: 20110713
  3. CARBOPLATIN. [Concomitant]
     Active Substance: CARBOPLATIN
     Indication: BREAST CANCER
     Dosage: 800 MG, UNK
     Dates: start: 20110330, end: 20110713

REACTIONS (2)
  - Alopecia [Not Recovered/Not Resolved]
  - Major depression [Unknown]
